FAERS Safety Report 6863773-4 (Version None)
Quarter: 2010Q3

REPORT INFORMATION
  Report Type: 
  Country: None (occurrence: None)
  Receive Date: 20100721
  Receipt Date: 20080401
  Transmission Date: 20110219
  Serious: No
  Sender: FDA-Public Use
  Company Number: US-PFIZER INC-2008022068

PATIENT
  Sex: Male
  Weight: 95.454 kg

DRUGS (4)
  1. CHANTIX [Suspect]
     Indication: SMOKING CESSATION THERAPY
     Dates: start: 20080302
  2. AMBIEN [Concomitant]
     Indication: SLEEP DISORDER
  3. CYPROHEPTADINE HCL [Concomitant]
  4. VITAMINS [Concomitant]

REACTIONS (4)
  - ABNORMAL DREAMS [None]
  - DIZZINESS [None]
  - NAUSEA [None]
  - SOMNOLENCE [None]
